FAERS Safety Report 6507743-4 (Version None)
Quarter: 2009Q4

REPORT INFORMATION
  Report Type: 
  Country: None (occurrence: None)
  Receive Date: 20091221
  Receipt Date: 20091211
  Transmission Date: 20100525
  Serious: Yes (Death, Hospitalization, Other)
  Sender: FDA-Public Use
  Company Number: DE-PFIZER INC-2009308884

PATIENT

DRUGS (3)
  1. THELIN [Suspect]
     Indication: PULMONARY ARTERIAL HYPERTENSION
     Route: 048
  2. REVATIO [Suspect]
     Indication: PULMONARY ARTERIAL HYPERTENSION
     Route: 048
  3. MARCUMAR [Concomitant]

REACTIONS (3)
  - PNEUMONIA [None]
  - PULMONARY HAEMORRHAGE [None]
  - VENTRICULAR FIBRILLATION [None]
